FAERS Safety Report 4975532-8 (Version None)
Quarter: 2006Q2

REPORT INFORMATION
  Report Type: 
  Country: None (occurrence: None)
  Receive Date: 20060410
  Receipt Date: 20060327
  Transmission Date: 20061013
  Serious: Yes (Hospitalization)
  Sender: FDA-Public Use
  Company Number: AE200603006337

PATIENT
  Age: 19 Year
  Sex: Male
  Weight: 80 kg

DRUGS (2)
  1. ZYPREXA [Suspect]
     Indication: SCHIZOPHRENIA
     Dosage: 5 MG, ORAL
     Route: 048
     Dates: start: 20040101, end: 20051001
  2. ANTIDEPRESSANTS [Concomitant]

REACTIONS (6)
  - APPENDICECTOMY [None]
  - DIZZINESS [None]
  - DYSPNOEA [None]
  - HYPOTENSION [None]
  - SYNCOPE [None]
  - TREATMENT NONCOMPLIANCE [None]
